FAERS Safety Report 15822622 (Version 1)
Quarter: 2019Q1

REPORT INFORMATION
  Report Type: Spontaneous
  Country: US (occurrence: US)
  Receive Date: 20190114
  Receipt Date: 20190114
  Transmission Date: 20190417
  Serious: Yes (Other)
  Sender: FDA-Public Use
  Company Number: US-SA-2019SA008613

PATIENT
  Sex: Female

DRUGS (11)
  1. AMITRIPTYLIN [Concomitant]
     Active Substance: AMITRIPTYLINE
  2. MIGRANAL [Concomitant]
     Active Substance: DIHYDROERGOTAMINE MESYLATE
     Dosage: SOL,4MG/ML
  3. MELOXICAM. [Concomitant]
     Active Substance: MELOXICAM
  4. VITAMIN D3 [Concomitant]
     Active Substance: CHOLECALCIFEROL
  5. AUBAGIO [Suspect]
     Active Substance: TERIFLUNOMIDE
     Dosage: 1 DF, QD
     Route: 048
     Dates: start: 20171001
  6. ASPIRIN (E.C.) [Concomitant]
     Active Substance: ASPIRIN
     Dosage: TBE, 81MG
  7. GABAPENTIN. [Concomitant]
     Active Substance: GABAPENTIN
  8. AMPYRA [Concomitant]
     Active Substance: DALFAMPRIDINE
     Dosage: TB1,10MG
  9. LETROZOLE. [Concomitant]
     Active Substance: LETROZOLE
  10. METOPROLOL. [Concomitant]
     Active Substance: METOPROLOL
     Dosage: TB2, 200 MG
  11. OMEPRAZOLE. [Concomitant]
     Active Substance: OMEPRAZOLE

REACTIONS (3)
  - Tremor [Not Recovered/Not Resolved]
  - Knee operation [Not Recovered/Not Resolved]
  - Urinary incontinence [Not Recovered/Not Resolved]
